FAERS Safety Report 5090028-3 (Version None)
Quarter: 2006Q3

REPORT INFORMATION
  Report Type: 
  Country: None (occurrence: None)
  Receive Date: 20060828
  Receipt Date: 20060615
  Transmission Date: 20061208
  Serious: Yes (Other)
  Sender: FDA-Public Use
  Company Number: PHEH2006US07855

PATIENT
  Age: 55 Year
  Sex: Female

DRUGS (1)
  1. ZOMETA [Suspect]
     Indication: METASTASES TO BONE
     Dates: start: 20020101, end: 20051001

REACTIONS (4)
  - ERYTHEMA [None]
  - OSTEONECROSIS [None]
  - PAIN [None]
  - SWELLING [None]
